FAERS Safety Report 6796008-1 (Version None)
Quarter: 2010Q2

REPORT INFORMATION
  Report Type: 
  Country: None (occurrence: None)
  Receive Date: 20100625
  Receipt Date: 20100617
  Transmission Date: 20101027
  Serious: Yes (Other)
  Sender: FDA-Public Use
  Company Number: US-JNJFOC-20100605701

PATIENT
  Sex: Female

DRUGS (2)
  1. EXTRA STRENGTH TYLENOL [Suspect]
     Route: 048
  2. EXTRA STRENGTH TYLENOL [Suspect]
     Indication: DRUG USE FOR UNKNOWN INDICATION
     Dosage: USED OFTEN FROM THE END OF MAR-2010 UNTIL APPROXIMATELY 10-JUN-2010
     Route: 048

REACTIONS (7)
  - ASTHMA [None]
  - BACK PAIN [None]
  - HEADACHE [None]
  - NECK PAIN [None]
  - PHARYNGITIS [None]
  - PNEUMONIA [None]
  - PRODUCT QUALITY ISSUE [None]
